FAERS Safety Report 9660602 (Version 4)
Quarter: 2013Q4

REPORT INFORMATION
  Report Type: Report from Study
  Country: JP (occurrence: JP)
  Receive Date: 20131031
  Receipt Date: 20131210
  Transmission Date: 20140711
  Serious: Yes (Life-Threatening, Hospitalization, Disabling)
  Sender: FDA-Public Use
  Company Number: JP-SA-CLOF-1002756

PATIENT
  Age: 19 Year
  Sex: Male

DRUGS (6)
  1. EVOLTRA [Suspect]
     Indication: ACUTE LYMPHOCYTIC LEUKAEMIA RECURRENT
     Dosage: DOSE:60 MG/BODY, QD
     Route: 042
     Dates: start: 20130816, end: 20130820
  2. ANTIBIOTICS [Concomitant]
     Indication: PANCREATITIS
     Dosage: UNK
     Dates: start: 201308
  3. ANTIBIOTICS [Concomitant]
     Indication: CHOLECYSTITIS
     Dosage: UNK
     Dates: start: 201308
  4. FLUDARA [Concomitant]
     Indication: ACUTE LYMPHOCYTIC LEUKAEMIA RECURRENT
     Route: 042
     Dates: start: 20130914, end: 20130916
  5. ENDOXAN [Concomitant]
     Indication: ACUTE LYMPHOCYTIC LEUKAEMIA RECURRENT
     Route: 042
     Dates: start: 20130914, end: 20130916
  6. THYMOGLOBULIN [Concomitant]
     Indication: ACUTE LYMPHOCYTIC LEUKAEMIA RECURRENT
     Route: 042
     Dates: start: 20130914, end: 20130916

REACTIONS (9)
  - Renal impairment [Not Recovered/Not Resolved]
  - Oedema peripheral [Not Recovered/Not Resolved]
  - Renal failure acute [Not Recovered/Not Resolved]
  - Localised oedema [Recovering/Resolving]
  - Hypercalcaemia [Not Recovered/Not Resolved]
  - Altered state of consciousness [Recovered/Resolved]
  - Tracheal obstruction [Recovering/Resolving]
  - Blood pressure decreased [Recovering/Resolving]
  - Malaise [Not Recovered/Not Resolved]
